FAERS Safety Report 7635764-7 (Version None)
Quarter: 2011Q3

REPORT INFORMATION
  Report Type: 
  Country: None (occurrence: None)
  Receive Date: 20110726
  Receipt Date: 20110724
  Transmission Date: 20111222
  Serious: Yes (Other)
  Sender: FDA-Public Use
  Company Number: US-PFIZER INC-2011168085

PATIENT
  Sex: Male
  Weight: 65.76 kg

DRUGS (2)
  1. LYRICA [Suspect]
     Indication: FIBROMYALGIA
     Dosage: 75 MG, 2X/DAY
     Route: 048
     Dates: start: 20110601, end: 20110720
  2. VICODIN [Concomitant]
     Indication: CHRONIC LYMPHOCYTIC LEUKAEMIA
     Dosage: 10/325 MG

REACTIONS (10)
  - DYSPNOEA [None]
  - RENAL PAIN [None]
  - BLISTER [None]
  - SWELLING FACE [None]
  - RASH [None]
  - SWOLLEN TONGUE [None]
  - DYSURIA [None]
  - CHEST PAIN [None]
  - VISION BLURRED [None]
  - URTICARIA [None]
